FAERS Safety Report 17568309 (Version 1)
Quarter: 2020Q1

REPORT INFORMATION
  Report Type: Spontaneous
  Country: GB (occurrence: GB)
  Receive Date: 20200320
  Receipt Date: 20200320
  Transmission Date: 20200409
  Serious: Yes (Other)
  Sender: FDA-Public Use
  Company Number: GB-ALLERGAN-2012112US

PATIENT
  Sex: Female

DRUGS (2)
  1. ADCAL [Concomitant]
     Indication: BONE DISORDER
  2. OXYBUTYNIN PCH - BP [Suspect]
     Active Substance: OXYBUTYNIN
     Indication: BLADDER DISORDER
     Dosage: 4 DOSAGE FORMS,1 WK
     Route: 062

REACTIONS (7)
  - Skin burning sensation [Not Recovered/Not Resolved]
  - Application site erythema [Not Recovered/Not Resolved]
  - Application site haemorrhage [Not Recovered/Not Resolved]
  - Product quality issue [Unknown]
  - Application site pruritus [Not Recovered/Not Resolved]
  - Application site rash [Not Recovered/Not Resolved]
  - Reaction to excipient [Not Recovered/Not Resolved]
